FAERS Safety Report 5913944-6 (Version None)
Quarter: 2008Q4

REPORT INFORMATION
  Report Type: 
  Country: None (occurrence: None)
  Receive Date: 20081009
  Receipt Date: 20081003
  Transmission Date: 20090506
  Serious: Yes (Other)
  Sender: FDA-Public Use
  Company Number: US-MERCK-0810USA00598

PATIENT
  Age: 63 Year
  Sex: Female

DRUGS (5)
  1. JANUVIA [Suspect]
     Indication: TYPE 2 DIABETES MELLITUS
     Route: 048
     Dates: start: 20070101
  2. ACTOS [Concomitant]
     Route: 065
  3. INSULIN [Concomitant]
     Route: 065
  4. AVANDIA [Suspect]
     Route: 065
  5. GLIMEPIRIDE [Suspect]
     Route: 065

REACTIONS (3)
  - DRUG INEFFECTIVE [None]
  - HYPOGLYCAEMIA [None]
  - PARALYSIS [None]
